FAERS Safety Report 24335802 (Version 1)
Quarter: 2024Q3

REPORT INFORMATION
  Report Type: Spontaneous
  Country: ES (occurrence: ES)
  Receive Date: 20240919
  Receipt Date: 20240919
  Transmission Date: 20241017
  Serious: Yes (Other)
  Sender: AUROBINDO
  Company Number: ES-MLMSERVICE-20220404-3472235-2

PATIENT
  Sex: Male

DRUGS (29)
  1. AMISULPRIDE [Interacting]
     Active Substance: AMISULPRIDE
     Indication: Schizoaffective disorder
     Dosage: 400 MILLIGRAM, ONCE A DAY
     Route: 065
     Dates: start: 1994, end: 201512
  2. AMISULPRIDE [Interacting]
     Active Substance: AMISULPRIDE
     Dosage: 800 MILLIGRAM, ONCE A DAY
     Route: 065
     Dates: start: 201512, end: 201604
  3. AMISULPRIDE [Interacting]
     Active Substance: AMISULPRIDE
     Dosage: 600 MILLIGRAM, ONCE A DAY
     Route: 065
     Dates: start: 201604, end: 201606
  4. AMISULPRIDE [Interacting]
     Active Substance: AMISULPRIDE
     Dosage: 400 MILLIGRAM, ONCE A DAY
     Route: 065
     Dates: start: 201606, end: 201609
  5. AMISULPRIDE [Interacting]
     Active Substance: AMISULPRIDE
     Dosage: 400 MILLIGRAM, ONCE A DAY
     Route: 065
     Dates: start: 201610, end: 201702
  6. ARIPIPRAZOLE [Suspect]
     Active Substance: ARIPIPRAZOLE
     Indication: Schizoaffective disorder
     Dosage: 10 UNK, DAILY
     Route: 065
     Dates: start: 201702, end: 201705
  7. ARIPIPRAZOLE [Suspect]
     Active Substance: ARIPIPRAZOLE
     Dosage: 400 MILLIGRAM, DAILY
     Route: 065
     Dates: start: 201712
  8. CITALOPRAM [Suspect]
     Active Substance: CITALOPRAM\CITALOPRAM HYDROBROMIDE
     Indication: Schizoaffective disorder
     Dosage: UNK
     Route: 065
  9. ESCITALOPRAM [Interacting]
     Active Substance: ESCITALOPRAM OXALATE
     Indication: Schizoaffective disorder
     Dosage: 15 MILLIGRAM, ONCE A DAY
     Route: 065
     Dates: start: 1994, end: 201512
  10. ESCITALOPRAM [Interacting]
     Active Substance: ESCITALOPRAM OXALATE
     Dosage: 15 MILLIGRAM, ONCE A DAY
     Route: 065
     Dates: start: 201606, end: 201609
  11. ESCITALOPRAM [Interacting]
     Active Substance: ESCITALOPRAM OXALATE
     Dosage: 20 MILLIGRAM, ONCE A DAY
     Route: 065
     Dates: start: 201702, end: 201705
  12. FLUOXETINE [Interacting]
     Active Substance: FLUOXETINE HYDROCHLORIDE
     Indication: Schizoaffective disorder
     Dosage: 20 MILLIGRAM, DAILY
     Route: 065
     Dates: start: 201604, end: 201606
  13. OLANZAPINE [Suspect]
     Active Substance: OLANZAPINE
     Indication: Schizoaffective disorder
     Dosage: 20 MILLIGRAM, DAILY
     Route: 065
     Dates: start: 201610, end: 201702
  14. OLANZAPINE [Suspect]
     Active Substance: OLANZAPINE
     Dosage: 20 MILLIGRAM, DAILY
     Route: 065
     Dates: start: 201705, end: 201712
  15. QUETIAPINE [Interacting]
     Active Substance: QUETIAPINE
     Indication: Schizoaffective disorder
     Dosage: 100 MILLIGRAM, DAILY
     Route: 065
     Dates: start: 201604, end: 201606
  16. VALPROATE SODIUM [Suspect]
     Active Substance: VALPROATE SODIUM
     Indication: Schizoaffective disorder
     Dosage: 500 MILLIGRAM, DAILY
     Route: 065
     Dates: start: 201606, end: 201609
  17. VALPROATE SODIUM [Suspect]
     Active Substance: VALPROATE SODIUM
     Dosage: 1000 MILLIGRAM, DAILY
     Route: 065
     Dates: start: 201610, end: 201702
  18. VALPROATE SODIUM [Suspect]
     Active Substance: VALPROATE SODIUM
     Dosage: 1000 MILLIGRAM, DAILY
     Route: 065
     Dates: start: 201702, end: 201705
  19. CLOBAZAM [Interacting]
     Active Substance: CLOBAZAM
     Indication: Schizoaffective disorder
     Dosage: UNK
     Route: 065
  20. CLONAZEPAM [Suspect]
     Active Substance: CLONAZEPAM
     Indication: Schizoaffective disorder
     Dosage: UNK
     Route: 065
  21. HALOPERIDOL [Suspect]
     Active Substance: HALOPERIDOL
     Indication: Schizoaffective disorder
     Dosage: UNK
     Route: 065
  22. LITHIUM [Suspect]
     Active Substance: LITHIUM
     Indication: Suicide attempt
     Dosage: 800 MILLIGRAM, ONCE A DAY
     Route: 065
     Dates: start: 1994, end: 201604
  23. LITHIUM [Suspect]
     Active Substance: LITHIUM
     Indication: Schizoaffective disorder
     Dosage: 600 MILLIGRAM, ONCE A DAY
     Route: 065
     Dates: start: 201702, end: 201705
  24. LITHIUM [Suspect]
     Active Substance: LITHIUM
     Dosage: 1200 MILLIGRAM, ONCE A DAY
     Route: 065
     Dates: start: 201712
  25. LORAZEPAM [Suspect]
     Active Substance: LORAZEPAM
     Indication: Schizoaffective disorder
     Dosage: UNK
     Route: 065
  26. LORMETAZEPAM [Suspect]
     Active Substance: LORMETAZEPAM
     Indication: Schizoaffective disorder
     Dosage: UNK
     Route: 065
  27. LEVOMEPROMAZINE [Suspect]
     Active Substance: LEVOMEPROMAZINE
     Indication: Schizoaffective disorder
     Dosage: 100 MILLIGRAM, DAILY
     Route: 065
     Dates: start: 201610, end: 201702
  28. TRAZODONE [Interacting]
     Active Substance: TRAZODONE HYDROCHLORIDE
     Indication: Schizoaffective disorder
     Dosage: 200 MILLIGRAM, ONCE A DAY
     Route: 065
     Dates: start: 1994, end: 201512
  29. TRAZODONE [Interacting]
     Active Substance: TRAZODONE HYDROCHLORIDE
     Dosage: 200 MILLIGRAM, ONCE A DAY
     Route: 065
     Dates: start: 201606, end: 201609

REACTIONS (9)
  - Deep vein thrombosis [Recovered/Resolved]
  - Gastrointestinal haemorrhage [Recovered/Resolved]
  - Hyperprolactinaemia [Unknown]
  - Extrapyramidal disorder [Recovered/Resolved]
  - Insomnia [Recovered/Resolved]
  - Sedation [Recovered/Resolved]
  - Drug interaction [Unknown]
  - Drug-genetic interaction [Recovered/Resolved]
  - Therapeutic product effect incomplete [Unknown]
